FAERS Safety Report 10988552 (Version 2)
Quarter: 2015Q2

REPORT INFORMATION
  Report Type: Spontaneous
  Country: US (occurrence: US)
  Receive Date: 20150404
  Receipt Date: 20150525
  Transmission Date: 20150821
  Serious: Yes (Hospitalization)
  Sender: FDA-Public Use
  Company Number: US-JNJFOC-20131103635

PATIENT
  Age: 57 Year
  Sex: Female
  Weight: 88.45 kg

DRUGS (2)
  1. REMICADE [Suspect]
     Active Substance: INFLIXIMAB
     Indication: PRODUCT USED FOR UNKNOWN INDICATION
     Dosage: 2ND INFUSION
     Route: 042
     Dates: start: 201310, end: 201310
  2. REMICADE [Suspect]
     Active Substance: INFLIXIMAB
     Indication: PRODUCT USED FOR UNKNOWN INDICATION
     Route: 042

REACTIONS (5)
  - Infusion related reaction [Unknown]
  - Pruritus [Unknown]
  - Dyspnoea [Unknown]
  - Chest pain [Unknown]
  - Erythema [Unknown]

NARRATIVE: CASE EVENT DATE: 201310
